FAERS Safety Report 23337190 (Version 2)
Quarter: 2025Q4

REPORT INFORMATION
  Report Type: Spontaneous
  Country: US (occurrence: US)
  Receive Date: 20231226
  Receipt Date: 20251224
  Transmission Date: 20260118
  Serious: No
  Sender: PADAGIS
  Company Number: US-PADAGIS-2023PAD01802

PATIENT

DRUGS (1)
  1. IMIQUIMOD [Suspect]
     Active Substance: IMIQUIMOD
     Indication: Squamous cell carcinoma
     Dosage: UNK,BED TIME 3 TIMES A WEEK FOR 10 WEEKS
     Route: 065
     Dates: start: 20231206

REACTIONS (4)
  - Application site pain [None]
  - Application site pain [None]
  - Product use issue [Unknown]
  - Product use in unapproved indication [Unknown]

NARRATIVE: CASE EVENT DATE: 20231206
